FAERS Safety Report 16986637 (Version 1)
Quarter: 2019Q4

REPORT INFORMATION
  Report Type: Spontaneous
  Country: JP (occurrence: JP)
  Receive Date: 20191103
  Receipt Date: 20191103
  Transmission Date: 20200122
  Serious: Yes (Other)
  Sender: FDA-Public Use
  Company Number: JP-MTPC-MTPC2019-0076691

PATIENT

DRUGS (2)
  1. RADICUT INJ. 30MG [Suspect]
     Active Substance: EDARAVONE
     Dosage: UNK
     Route: 041
     Dates: start: 20191017, end: 20191026
  2. RADICUT INJ. 30MG [Suspect]
     Active Substance: EDARAVONE
     Dosage: UNK
     Route: 041
     Dates: start: 20190826, end: 20190902

REACTIONS (1)
  - Pneumonia aspiration [Unknown]
